FAERS Safety Report 6743987-4 (Version None)
Quarter: 2010Q2

REPORT INFORMATION
  Report Type: 
  Country: None (occurrence: None)
  Receive Date: 20100527
  Receipt Date: 20100519
  Transmission Date: 20101027
  Serious: Yes (Other)
  Sender: FDA-Public Use
  Company Number: US-JNJFOC-20100509053

PATIENT
  Sex: Male
  Weight: 83.92 kg

DRUGS (7)
  1. FENTANYL-100 [Suspect]
     Indication: BACK PAIN
     Route: 062
  2. DURAGESIC-100 [Suspect]
     Indication: BACK PAIN
     Route: 062
  3. DURAGESIC-100 [Suspect]
     Route: 062
  4. DURAGESIC-100 [Suspect]
     Route: 062
  5. DURAGESIC-100 [Suspect]
     Route: 062
  6. NEURONTIN [Concomitant]
     Indication: NEURALGIA
     Route: 048
  7. CHOLESTEROL DRUG [Concomitant]
     Indication: BLOOD CHOLESTEROL
     Route: 048

REACTIONS (8)
  - DISABILITY [None]
  - DIZZINESS [None]
  - EXPIRED DRUG ADMINISTERED [None]
  - FEELING ABNORMAL [None]
  - HYPERHIDROSIS [None]
  - INADEQUATE ANALGESIA [None]
  - NAUSEA [None]
  - PALLOR [None]
